FAERS Safety Report 7025832-5 (Version None)
Quarter: 2010Q4

REPORT INFORMATION
  Report Type: 
  Country: None (occurrence: None)
  Receive Date: 20101004
  Receipt Date: 20100924
  Transmission Date: 20110411
  Serious: No
  Sender: FDA-Public Use
  Company Number: US-BIOGENIDEC-2010BI016320

PATIENT
  Sex: Female

DRUGS (3)
  1. TYSABRI [Suspect]
     Indication: CROHN'S DISEASE
     Route: 042
     Dates: start: 20090731, end: 20100922
  2. SOLU-MEDROL [Concomitant]
     Indication: PREMEDICATION
  3. AZATHIOPRINE [Concomitant]
     Indication: CROHN'S DISEASE

REACTIONS (4)
  - HEADACHE [None]
  - INFECTIOUS MONONUCLEOSIS [None]
  - LUPUS-LIKE SYNDROME [None]
  - MIGRAINE [None]
